FAERS Safety Report 20985639 (Version 1)
Quarter: 2022Q2

REPORT INFORMATION
  Report Type: Spontaneous
  Country: CN (occurrence: None)
  Receive Date: 20220621
  Receipt Date: 20220621
  Transmission Date: 20220721
  Serious: Yes (Other)
  Sender: FDA-Public Use
  Company Number: CN-ROCHE-3119015

PATIENT
  Age: 50 Year
  Sex: Male

DRUGS (17)
  1. AVASTIN [Suspect]
     Active Substance: BEVACIZUMAB
     Indication: Adenocarcinoma of colon
     Dosage: D1, FOR 21 DAYS
     Route: 041
     Dates: start: 20200530, end: 202008
  2. AVASTIN [Suspect]
     Active Substance: BEVACIZUMAB
     Dosage: D1, FOR 21DAYS
     Route: 041
     Dates: start: 20200822
  3. XELODA [Suspect]
     Active Substance: CAPECITABINE
     Indication: Adenocarcinoma of colon
     Dosage: D1-D14, 1.5 G IN THE MORNING AND 2.0 G IN THE EVENING
     Route: 048
  4. XELODA [Suspect]
     Active Substance: CAPECITABINE
     Dosage: D1-D14, 1.5 G IN THE MORNING AND 2.0 G IN THE EVENING FOR 21 DAYS
     Route: 048
     Dates: start: 20200530, end: 202008
  5. XELODA [Suspect]
     Active Substance: CAPECITABINE
     Dosage: D2-D15, 1.5 G IN THE MORNING FOR 21 DAYS
     Route: 048
     Dates: start: 20200822
  6. OXALIPLATIN [Concomitant]
     Active Substance: OXALIPLATIN
     Indication: Adenocarcinoma of colon
     Dosage: D1
     Route: 041
  7. OXALIPLATIN [Concomitant]
     Active Substance: OXALIPLATIN
     Dosage: D2,  TREATMENT ON 07-DEC-2019, 25-DEC-2019 FOR 14 DAYS
     Route: 041
  8. OXALIPLATIN [Concomitant]
     Active Substance: OXALIPLATIN
     Dosage: FOR 4 CYCLES
     Dates: start: 20191207, end: 20200210
  9. OXALIPLATIN [Concomitant]
     Active Substance: OXALIPLATIN
     Dosage: D2, FOR 21DAYS
     Route: 041
     Dates: start: 20200530, end: 202008
  10. CETUXIMAB [Concomitant]
     Active Substance: CETUXIMAB
     Indication: Adenocarcinoma of colon
     Dosage: D1, TREATMENT ON 07-DEC-2019, 25-DEC-2019 FOR 14 DAYS
     Route: 041
  11. CETUXIMAB [Concomitant]
     Active Substance: CETUXIMAB
     Dates: start: 20191207, end: 20200210
  12. LEUCOVORIN CALCIUM [Concomitant]
     Active Substance: LEUCOVORIN CALCIUM
     Indication: Adenocarcinoma of colon
     Dosage: D1,TREATMENT ON 07-DEC-2019, 25-DEC-2019 FOR 14 DAYS
     Route: 041
  13. LEUCOVORIN CALCIUM [Concomitant]
     Active Substance: LEUCOVORIN CALCIUM
     Dosage: D2,  TREATMENT ON 07-DEC-2019, 25-DEC-2019 FOR 14 DAYS
     Route: 041
  14. LEUCOVORIN CALCIUM [Concomitant]
     Active Substance: LEUCOVORIN CALCIUM
     Dosage: FOR 4 CYCLES
     Route: 065
     Dates: start: 20191207, end: 20200210
  15. FLUOROURACIL [Concomitant]
     Active Substance: FLUOROURACIL
     Indication: Adenocarcinoma of colon
     Dosage: D2,TREATMENT ON 07-DEC-2019, 25-DEC-2019 FOR 14 DAYS
     Route: 041
  16. FLUOROURACIL [Concomitant]
     Active Substance: FLUOROURACIL
     Dosage: D2,D3(48 HOUR)  TREATMENT ON 07-DEC-2019, 25-DEC-2019 FOR 14 DAYS
     Route: 042
  17. FLUOROURACIL [Concomitant]
     Active Substance: FLUOROURACIL
     Dosage: FOR 4 CYCLES
     Dates: start: 20191207, end: 20200210

REACTIONS (3)
  - Myelosuppression [Unknown]
  - Hypoaesthesia [Unknown]
  - Jaundice cholestatic [Unknown]
